FAERS Safety Report 6805162-4 (Version None)
Quarter: 2010Q2

REPORT INFORMATION
  Report Type: 
  Country: None (occurrence: None)
  Receive Date: 20100628
  Receipt Date: 20070929
  Transmission Date: 20101027
  Serious: No
  Sender: FDA-Public Use
  Company Number: US-PFIZER INC-2007061366

PATIENT
  Sex: Male
  Weight: 88.6 kg

DRUGS (6)
  1. XALATAN [Suspect]
     Indication: OCULAR HYPERTENSION
     Dosage: EACH EYE
     Dates: start: 20070221
  2. XALATAN [Suspect]
     Indication: OPEN ANGLE GLAUCOMA
  3. XALATAN [Suspect]
  4. TYLENOL [Concomitant]
  5. METFORMIN HCL [Concomitant]
  6. ADVIL LIQUI-GELS [Concomitant]

REACTIONS (2)
  - BLOOD GLUCOSE INCREASED [None]
  - EYE PAIN [None]
